FAERS Safety Report 19585093 (Version 1)
Quarter: 2021Q3

REPORT INFORMATION
  Report Type: Spontaneous
  Country: US (occurrence: US)
  Receive Date: 20210720
  Receipt Date: 20210720
  Transmission Date: 20211014
  Serious: No
  Sender: FDA-Public Use
  Company Number: US-ROCHE-2717251

PATIENT
  Sex: Female
  Weight: 67.19 kg

DRUGS (1)
  1. TECENTRIQ [Suspect]
     Active Substance: ATEZOLIZUMAB
     Indication: TRIPLE NEGATIVE BREAST CANCER
     Route: 042
     Dates: start: 20200220

REACTIONS (3)
  - Gingival erythema [Recovered/Resolved]
  - Gingival bleeding [Unknown]
  - Oedema [Recovered/Resolved]
